FAERS Safety Report 9606993 (Version 1)
Quarter: 2013Q4

REPORT INFORMATION
  Report Type: Spontaneous
  Country: US (occurrence: US)
  Receive Date: 20131009
  Receipt Date: 20131009
  Transmission Date: 20140711
  Serious: Yes (Hospitalization)
  Sender: FDA-Public Use
  Company Number: US-AMGEN-USASP2013069594

PATIENT
  Age: 52 Year
  Sex: Female

DRUGS (4)
  1. PROLIA [Suspect]
     Indication: OSTEOPOROSIS
     Dosage: 60 MG, Q6MO
     Route: 065
     Dates: start: 20130709
  2. LANSOPRAZOL [Concomitant]
     Dosage: 15 MG, QD
  3. NITROFURANTOIN [Concomitant]
     Dosage: 50 MG, QD
  4. PHENOBARBITAL                      /00023202/ [Concomitant]
     Dosage: 60 MG, QD

REACTIONS (2)
  - Urosepsis [Unknown]
  - Pneumonia [Unknown]
